FAERS Safety Report 8281647-1 (Version None)
Quarter: 2012Q2

REPORT INFORMATION
  Report Type: 
  Country: None (occurrence: None)
  Receive Date: 20120413
  Receipt Date: 20120405
  Transmission Date: 20120825
  Serious: Yes (Life-Threatening)
  Sender: FDA-Public Use
  Company Number: GB-PFIZER INC-2012073411

PATIENT
  Age: 59 Year
  Sex: Male

DRUGS (9)
  1. OXYBUTYNIN [Concomitant]
  2. CARBAMAZEPINE [Concomitant]
  3. ALENDRONIC ACID [Concomitant]
  4. ACETAMINOPHEN WITH PROPOXYPHENE HCL TAB [Concomitant]
  5. ATORVASTATIN [Concomitant]
  6. ACETYLSALICYLIC ACID [Concomitant]
  7. TOVIAZ [Suspect]
     Dosage: 4 MG, UNK
  8. NEURONTIN [Concomitant]
  9. BACLOFEN [Concomitant]

REACTIONS (4)
  - RESPIRATORY ARREST [None]
  - DIZZINESS [None]
  - SYNCOPE [None]
  - LOSS OF CONSCIOUSNESS [None]
